FAERS Safety Report 8249027-2 (Version None)
Quarter: 2012Q2

REPORT INFORMATION
  Report Type: 
  Country: None (occurrence: None)
  Receive Date: 20120402
  Receipt Date: 20120326
  Transmission Date: 20120825
  Serious: No
  Sender: FDA-Public Use
  Company Number: US-BIOGENIDEC-2012BI010507

PATIENT
  Sex: Male

DRUGS (4)
  1. EMLA [Concomitant]
     Indication: LOCAL ANAESTHESIA
  2. ARICEPT [Concomitant]
     Indication: AMNESIA
     Dates: start: 19970101
  3. AVONEX [Suspect]
     Indication: MULTIPLE SCLEROSIS
     Route: 030
     Dates: start: 19971201, end: 20030101
  4. AVONEX [Suspect]
     Route: 030
     Dates: start: 20030101, end: 20120310

REACTIONS (5)
  - AMNESIA [None]
  - MULTIPLE SCLEROSIS [None]
  - ANXIETY [None]
  - INJECTION SITE PAIN [None]
  - HYPERAESTHESIA [None]
